FAERS Safety Report 8972553 (Version 2)
Quarter: 2012Q4

REPORT INFORMATION
  Report Type: 
  Country: US (occurrence: US)
  Receive Date: 20121219
  Receipt Date: 20121224
  Transmission Date: 20130627
  Serious: Yes (Other)
  Sender: FDA-Public Use
  Company Number: US-AMGEN-USASP2012080396

PATIENT
  Age: 72 Year
  Sex: Male

DRUGS (9)
  1. NPLATE [Suspect]
     Indication: IDIOPATHIC THROMBOCYTOPENIC PURPURA
     Dosage: 250 mug, qmo
  2. NPLATE [Suspect]
  3. LIPITOR [Concomitant]
     Dosage: 10 mg, qd
  4. AVODART [Concomitant]
     Dosage: 0.5 mg, qd
  5. LISINOPRIL [Concomitant]
     Dosage: 20 mg, qd
  6. METFORMIN [Concomitant]
     Dosage: 1000 mg, bid
  7. STARLIX [Concomitant]
     Dosage: 60 mg, UNK
  8. OMEPRAZOLE [Concomitant]
     Dosage: 20 mg, qd
  9. VERAPAMIL [Concomitant]
     Dosage: 120 mg, qd

REACTIONS (1)
  - Therapeutic response decreased [Unknown]
